FAERS Safety Report 6071094-5 (Version None)
Quarter: 2009Q1

REPORT INFORMATION
  Report Type: 
  Country: None (occurrence: None)
  Receive Date: 20090209
  Receipt Date: 20081124
  Transmission Date: 20090719
  Serious: No
  Sender: FDA-Public Use
  Company Number: A0757889A

PATIENT
  Age: 63 Year
  Sex: Male

DRUGS (7)
  1. PAXIL CR [Suspect]
     Dosage: 12.5MG PER DAY
     Route: 048
     Dates: start: 20081104
  2. LEVEMIR [Concomitant]
  3. AVAPRO [Concomitant]
  4. TORSEMIDE [Concomitant]
  5. JANUMET [Concomitant]
  6. LOTREL [Concomitant]
  7. VYTORIN [Concomitant]

REACTIONS (3)
  - DRUG INEFFECTIVE [None]
  - EJACULATION FAILURE [None]
  - THERAPEUTIC RESPONSE DELAYED [None]
